FAERS Safety Report 17556408 (Version 3)
Quarter: 2020Q2

REPORT INFORMATION
  Report Type: Spontaneous
  Country: US (occurrence: US)
  Receive Date: 20200318
  Receipt Date: 20200410
  Transmission Date: 20200713
  Serious: Yes (Hospitalization)
  Sender: FDA-Public Use
  Company Number: US-SA-2020SA068251

PATIENT
  Age: 45 Year
  Sex: Female
  Weight: 70.3 kg

DRUGS (36)
  1. DUPIXENT [Suspect]
     Active Substance: DUPILUMAB
     Indication: DERMATITIS ATOPIC
     Dosage: 300 MG, QOW
     Route: 058
  2. FERROUS FUMARATE [Concomitant]
     Active Substance: FERROUS FUMARATE
  3. DUPIXENT [Suspect]
     Active Substance: DUPILUMAB
     Indication: IMMUNODEFICIENCY
     Dosage: 600 MG, 1X
     Route: 058
     Dates: start: 2020
  4. MAGNESIUM CHLORIDE. [Concomitant]
     Active Substance: MAGNESIUM CHLORIDE
  5. SENNA LAXATIVE [Concomitant]
     Active Substance: SENNOSIDES
  6. APPLE CIDER VINEGAR [Concomitant]
     Active Substance: APPLE CIDER VINEGAR
  7. MULTIVITAMINS [VITAMINS NOS] [Concomitant]
     Active Substance: VITAMINS
  8. IBUPROFEN. [Concomitant]
     Active Substance: IBUPROFEN
  9. HIZENTRA [Concomitant]
     Active Substance: HUMAN IMMUNOGLOBULIN G
  10. GARLIC [ALLIUM SATIVUM] [Concomitant]
     Active Substance: GARLIC
  11. METHOCARBAMOL. [Concomitant]
     Active Substance: METHOCARBAMOL
  12. AMBIEN [Concomitant]
     Active Substance: ZOLPIDEM TARTRATE
  13. TRYPTOPHAN, L- [Concomitant]
     Active Substance: TRYPTOPHAN
  14. OXYCODONE HYDROCHLORIDE. [Concomitant]
     Active Substance: OXYCODONE HYDROCHLORIDE
  15. AJOVY [Concomitant]
     Active Substance: FREMANEZUMAB-VFRM
  16. METOCLOPRAMIDE HCL [Concomitant]
     Active Substance: METOCLOPRAMIDE HYDROCHLORIDE
  17. MILK THISTLE [SILYBUM MARIANUM] [Concomitant]
     Active Substance: DIETARY SUPPLEMENT\HERBALS\MILK THISTLE
  18. NAPROXEN. [Concomitant]
     Active Substance: NAPROXEN
  19. PROGESTERONE. [Concomitant]
     Active Substance: PROGESTERONE
  20. VITAMIN C [Concomitant]
     Active Substance: ASCORBIC ACID
  21. THYROID [Concomitant]
     Active Substance: LEVOTHYROXINE\LIOTHYRONINE
  22. ASMANEX HFA [Concomitant]
     Active Substance: MOMETASONE FUROATE
  23. REISHI MUSHROOM [Concomitant]
  24. TURMERIC [CURCUMA LONGA] [Concomitant]
     Active Substance: HERBALS\TURMERIC
  25. COENZYME Q10 [Concomitant]
     Active Substance: UBIDECARENONE
  26. ALPRAZOLAM. [Concomitant]
     Active Substance: ALPRAZOLAM
  27. ZOFRAN [Concomitant]
     Active Substance: ONDANSETRON HYDROCHLORIDE
  28. BOTOX [Concomitant]
     Active Substance: ONABOTULINUMTOXINA
  29. HYDROXYZINE HCL [Concomitant]
     Active Substance: HYDROXYZINE HYDROCHLORIDE
  30. DOXEPIN HCL [Concomitant]
     Active Substance: DOXEPIN HYDROCHLORIDE
  31. SINGULAIR [Concomitant]
     Active Substance: MONTELUKAST SODIUM
  32. EPINEPHRINE. [Concomitant]
     Active Substance: EPINEPHRINE
  33. LMX4 [Concomitant]
     Active Substance: LIDOCAINE
  34. PROBIOTICS NOS [Concomitant]
     Active Substance: PROBIOTICS NOS
  35. LINZESS [Concomitant]
     Active Substance: LINACLOTIDE
  36. PANTOPRAZOLE SODIUM. [Concomitant]
     Active Substance: PANTOPRAZOLE SODIUM

REACTIONS (5)
  - Large intestine infection [Unknown]
  - Hospitalisation [Unknown]
  - Malaise [Unknown]
  - Drug hypersensitivity [Unknown]
  - Product use in unapproved indication [Unknown]

NARRATIVE: CASE EVENT DATE: 20200310
